FAERS Safety Report 25053248 (Version 4)
Quarter: 2025Q2

REPORT INFORMATION
  Report Type: Spontaneous
  Country: US (occurrence: US)
  Receive Date: 20250307
  Receipt Date: 20250603
  Transmission Date: 20250717
  Serious: No
  Sender: SANOFI AVENTIS
  Company Number: US-SA-2025SA064785

PATIENT
  Age: 83 Year
  Sex: Female
  Weight: 78 kg

DRUGS (1)
  1. KEVZARA [Suspect]
     Active Substance: SARILUMAB
     Indication: Polymyalgia rheumatica
     Dosage: 200 MG, QOW
     Route: 058
     Dates: start: 20250205, end: 20250514

REACTIONS (6)
  - Muscle spasms [Recovered/Resolved]
  - Constipation [Recovered/Resolved]
  - Hot flush [Unknown]
  - Night sweats [Unknown]
  - Psoriasis [Unknown]
  - Rash [Unknown]

NARRATIVE: CASE EVENT DATE: 20250101
